FAERS Safety Report 5694657-5 (Version None)
Quarter: 2008Q2

REPORT INFORMATION
  Report Type: 
  Country: None (occurrence: None)
  Receive Date: 20080404
  Receipt Date: 20080331
  Transmission Date: 20081010
  Serious: Yes (Other)
  Sender: FDA-Public Use
  Company Number: A0718340A

PATIENT
  Sex: Female

DRUGS (2)
  1. VERAMYST [Suspect]
     Indication: DRUG USE FOR UNKNOWN INDICATION
     Route: 045
  2. NO CONCURRENT MEDICATION [Concomitant]

REACTIONS (2)
  - ATRIAL FIBRILLATION [None]
  - DRUG HYPERSENSITIVITY [None]
